FAERS Safety Report 11551137 (Version 1)
Quarter: 2015Q3

REPORT INFORMATION
  Report Type: Spontaneous
  Country: US (occurrence: US)
  Receive Date: 20150903
  Receipt Date: 20150903
  Transmission Date: 20151125
  Serious: No
  Sender: FDA-Public Use
  Company Number: US-ELI_LILLY_AND_COMPANY-US201209005737

PATIENT
  Age: 72 Year
  Sex: Female

DRUGS (2)
  1. HUMALOG MIX75/25 [Suspect]
     Active Substance: INSULIN LISPRO
     Dosage: UNK
     Dates: start: 201209
  2. HUMALOG [Suspect]
     Active Substance: INSULIN LISPRO

REACTIONS (6)
  - Drug ineffective [Unknown]
  - Malaise [Unknown]
  - Wrong drug administered [Unknown]
  - Blood glucose abnormal [Unknown]
  - Visual acuity reduced [Unknown]
  - Abdominal discomfort [Unknown]

NARRATIVE: CASE EVENT DATE: 20120917
